FAERS Safety Report 11743433 (Version 1)
Quarter: 2015Q4

REPORT INFORMATION
  Report Type: Spontaneous
  Country: DE (occurrence: DE)
  Receive Date: 20151116
  Receipt Date: 20151116
  Transmission Date: 20160304
  Serious: Yes (Hospitalization)
  Sender: FDA-Public Use
  Company Number: DE-B.I. PHARMACEUTICALS,INC./RIDGEFIELD-2015-BI-62959DE

PATIENT
  Sex: Male

DRUGS (1)
  1. PRADAXA [Suspect]
     Active Substance: DABIGATRAN ETEXILATE MESYLATE
     Indication: PRODUCT USED FOR UNKNOWN INDICATION
     Route: 065

REACTIONS (10)
  - Limb injury [Unknown]
  - Rash [Unknown]
  - Haematoma [Unknown]
  - Contusion [Unknown]
  - Rash pustular [Unknown]
  - Swelling [Unknown]
  - Pruritus [Unknown]
  - Fall [Unknown]
  - Post procedural haemorrhage [Unknown]
  - Pain [Unknown]
